FAERS Safety Report 9690223 (Version 2)
Quarter: 2013Q4

REPORT INFORMATION
  Report Type: Spontaneous
  Country: US (occurrence: US)
  Receive Date: 20131115
  Receipt Date: 20131122
  Transmission Date: 20140711
  Serious: Yes (Other)
  Sender: FDA-Public Use
  Company Number: US-JNJFOC-20131105382

PATIENT
  Age: 71 Year
  Sex: Male
  Weight: 83.92 kg

DRUGS (6)
  1. XARELTO [Suspect]
     Indication: CEREBROVASCULAR ACCIDENT PROPHYLAXIS
     Route: 048
     Dates: start: 201308
  2. XARELTO [Suspect]
     Indication: ATRIAL FIBRILLATION
     Route: 048
     Dates: start: 201308
  3. CADUET [Concomitant]
     Indication: BLOOD CHOLESTEROL
     Dosage: 2.5-40MG??FOR MANY YEARS
     Route: 048
  4. ZOLOFT [Concomitant]
     Indication: DEPRESSION
     Dosage: FOR MANY YEARS
     Route: 048
  5. TOPROL [Concomitant]
     Indication: BLOOD PRESSURE
     Route: 048
     Dates: start: 2011
  6. METHOTREXATE [Concomitant]
     Indication: ARTHRITIS
     Dosage: 10MG/2.5 MG??ABOUT 5 TO 6 YEARS
     Route: 048

REACTIONS (3)
  - Cardiac flutter [Not Recovered/Not Resolved]
  - Dyspepsia [Not Recovered/Not Resolved]
  - Anxiety [Not Recovered/Not Resolved]
